FAERS Safety Report 9076838 (Version 1)
Quarter: 2013Q1

REPORT INFORMATION
  Report Type: Report from Study
  Country: US (occurrence: US)
  Receive Date: 20130129
  Receipt Date: 20130129
  Transmission Date: 20140127
  Serious: Yes (Hospitalization)
  Sender: FDA-Public Use
  Company Number: US-ABBOTT-12P-163-0939406-00

PATIENT
  Sex: Female
  Weight: 69.92 kg

DRUGS (10)
  1. HUMIRA 40 MG/0.8 ML PEN [Suspect]
     Indication: RHEUMATOID ARTHRITIS
     Dates: start: 2009, end: 201112
  2. CELEBREX [Concomitant]
     Indication: PAIN
  3. FOLIC ACID [Concomitant]
     Indication: VITAMIN SUPPLEMENTATION
  4. METHOTREXATE [Concomitant]
     Indication: RHEUMATOID ARTHRITIS
  5. FOSAMAX [Concomitant]
     Indication: BONE DISORDER
  6. OMEPRAZOLE [Concomitant]
     Indication: PRODUCT USED FOR UNKNOWN INDICATION
  7. METFORMIN [Concomitant]
     Indication: DIABETES MELLITUS
  8. GLYBURIDE [Concomitant]
     Indication: DIABETES MELLITUS
  9. LEVOTHYROXINE [Concomitant]
     Indication: HYPOTHYROIDISM
  10. JANUVIA [Concomitant]
     Indication: DIABETES MELLITUS

REACTIONS (3)
  - Rheumatoid arthritis [Not Recovered/Not Resolved]
  - Weight bearing difficulty [Not Recovered/Not Resolved]
  - Walking aid user [Not Recovered/Not Resolved]
